FAERS Safety Report 16124505 (Version 2)
Quarter: 2019Q3

REPORT INFORMATION
  Report Type: Spontaneous
  Country: US (occurrence: US)
  Receive Date: 20190327
  Receipt Date: 20190703
  Transmission Date: 20191004
  Serious: Yes (Hospitalization)
  Sender: FDA-Public Use
  Company Number: US-CELGENEUS-USA-20190308559

PATIENT
  Age: 64 Year
  Sex: Female

DRUGS (21)
  1. POMALYST [Suspect]
     Active Substance: POMALIDOMIDE
     Dosage: 3 MILLIGRAM
     Route: 048
     Dates: start: 201504
  2. RALTEGRAVIR POTASSIUM [Concomitant]
     Active Substance: RALTEGRAVIR POTASSIUM
     Indication: HIV INFECTION
     Dosage: 800 MILLIGRAM
     Route: 048
     Dates: start: 20100712, end: 20190129
  3. EMTRICITABINE-TENOFOVIR [Concomitant]
     Indication: HIV INFECTION
     Dosage: 200MG-300 MG
     Route: 048
     Dates: start: 20060613
  4. AMLODIPINE [Concomitant]
     Active Substance: AMLODIPINE BESYLATE
     Indication: HYPERTENSION
     Dosage: 5 MILLIGRAM
     Route: 048
     Dates: start: 20180413
  5. VELCADE [Concomitant]
     Active Substance: BORTEZOMIB
     Indication: NEOPLASM MALIGNANT
     Route: 058
     Dates: start: 20190117, end: 20190129
  6. DILTIAZEM. [Concomitant]
     Active Substance: DILTIAZEM
     Indication: HYPERTENSION
     Dosage: 120 MILLIGRAM
     Route: 048
     Dates: start: 20131112
  7. POMALYST [Suspect]
     Active Substance: POMALIDOMIDE
     Dosage: 4 MILLIGRAM
     Route: 048
     Dates: start: 20190128
  8. ALPRAZOLAM. [Concomitant]
     Active Substance: ALPRAZOLAM
     Indication: ANXIETY
     Dosage: 1.5 MILLIGRAM
     Route: 048
     Dates: start: 20181217
  9. MECLIZINE [Concomitant]
     Active Substance: MECLIZINE HYDROCHLORIDE
     Indication: VERTIGO
     Dosage: 50 MILLIGRAM
     Route: 048
     Dates: start: 20140711
  10. FUROSEMIDE. [Concomitant]
     Active Substance: FUROSEMIDE
     Indication: OEDEMA
  11. POTASSIUM CHLORIDE ER [Concomitant]
     Active Substance: POTASSIUM CHLORIDE
     Indication: BLOOD POTASSIUM DECREASED
     Dosage: 10 MILLIEQUIVALENTS
     Route: 048
     Dates: start: 20150603
  12. POMALYST [Suspect]
     Active Substance: POMALIDOMIDE
     Dosage: 3 MILLIGRAM
     Route: 048
     Dates: start: 201508
  13. POMALYST [Suspect]
     Active Substance: POMALIDOMIDE
     Dosage: 3 MILLIGRAM
     Route: 048
     Dates: start: 20190617
  14. ZOFRAN ODT [Concomitant]
     Active Substance: ONDANSETRON HYDROCHLORIDE
     Indication: NAUSEA
     Dosage: 24 MILLIGRAM
     Route: 048
     Dates: start: 20190214
  15. MECLIZINE [Concomitant]
     Active Substance: MECLIZINE HYDROCHLORIDE
     Indication: DIZZINESS
  16. FUROSEMIDE. [Concomitant]
     Active Substance: FUROSEMIDE
     Indication: HYPERTENSION
     Route: 048
     Dates: start: 20061019
  17. VANCOMYCIN [Concomitant]
     Active Substance: VANCOMYCIN
     Indication: CLOSTRIDIUM DIFFICILE COLITIS
     Dosage: 1000 MILLIGRAM
     Route: 048
     Dates: start: 20080523
  18. POMALYST [Suspect]
     Active Substance: POMALIDOMIDE
     Indication: PLASMA CELL MYELOMA
     Dosage: 4 MILLIGRAM
     Route: 048
     Dates: start: 201503
  19. METOPROLOL SUCCINATE. [Concomitant]
     Active Substance: METOPROLOL SUCCINATE
     Indication: HYPERTENSION
     Dosage: 100 MILLIGRAM
     Route: 048
     Dates: start: 20070710
  20. MAGNESIUM OXIDE. [Concomitant]
     Active Substance: MAGNESIUM OXIDE
     Indication: BLOOD MAGNESIUM DECREASED
     Dosage: 800 MILLIGRAM
     Route: 048
     Dates: start: 20140328
  21. ASPIRIN. [Concomitant]
     Active Substance: ASPIRIN
     Indication: CARDIAC DISORDER
     Dosage: 81 MILLIGRAM
     Route: 048
     Dates: start: 20060613

REACTIONS (6)
  - Plasma cell myeloma [Unknown]
  - Fatigue [Unknown]
  - Fall [Recovering/Resolving]
  - Spinal fracture [Not Recovered/Not Resolved]
  - Neuropathy peripheral [Unknown]
  - Asthenia [Unknown]

NARRATIVE: CASE EVENT DATE: 2019
